FAERS Safety Report 19014268 (Version 2)
Quarter: 2021Q2

REPORT INFORMATION
  Report Type: Report from Study
  Country: KR (occurrence: KR)
  Receive Date: 20210316
  Receipt Date: 20210503
  Transmission Date: 20210717
  Serious: Yes (Hospitalization, Other)
  Sender: FDA-Public Use
  Company Number: KR-TAKEDA-2021TUS014917

PATIENT
  Age: 57 Year
  Sex: Male
  Weight: 54.5 kg

DRUGS (43)
  1. TYLENOL 8HR [Concomitant]
     Active Substance: ACETAMINOPHEN
     Dosage: UNK
     Route: 048
     Dates: start: 20210304, end: 20210304
  2. AZATHIOPRINE. [Concomitant]
     Active Substance: AZATHIOPRINE
     Dosage: 50 MILLIGRAM, QD
     Route: 048
     Dates: start: 20050622, end: 20050719
  3. PENTASA [Concomitant]
     Active Substance: MESALAMINE
     Dosage: 1500 MILLIGRAM, BID
     Route: 048
     Dates: start: 20040326, end: 20040422
  4. PENTASA [Concomitant]
     Active Substance: MESALAMINE
     Dosage: 1000 MILLIGRAM, QD
     Route: 048
     Dates: start: 20130305, end: 20130617
  5. PENTASA [Concomitant]
     Active Substance: MESALAMINE
     Dosage: 2000 MILLIGRAM, BID
     Route: 048
     Dates: start: 20141223, end: 20150208
  6. PENTASA [Concomitant]
     Active Substance: MESALAMINE
     Dosage: 2 MILLIGRAM, BID
     Route: 048
     Dates: start: 20161107
  7. NEXIUM I.V. [Concomitant]
     Active Substance: ESOMEPRAZOLE SODIUM
     Indication: PROPHYLAXIS
     Dosage: 40 MILLIGRAM, QD
     Route: 042
     Dates: start: 20210304, end: 20210308
  8. PENTASA [Concomitant]
     Active Substance: MESALAMINE
     Dosage: 100 MILLIGRAM, TID
     Route: 048
     Dates: start: 20011121, end: 20011211
  9. PENTASA [Concomitant]
     Active Substance: MESALAMINE
     Dosage: 1000 MILLIGRAM, TID
     Route: 048
     Dates: start: 20020809, end: 20021010
  10. DENOGAN [Concomitant]
     Active Substance: PROPACETAMOL HYDROCHLORIDE
     Dosage: 1000 MILLIGRAM
     Route: 042
     Dates: start: 20210304, end: 20210304
  11. FURTMAN [Concomitant]
     Dosage: 1 MILLILITER
     Route: 042
     Dates: start: 20210306, end: 20210308
  12. MEDILAC DS [Concomitant]
     Indication: DYSPEPSIA
     Dosage: 250 MILLIGRAM, BID
     Dates: start: 20200406, end: 20210303
  13. ALMAGEL [ALUMINIUM HYDROXIDE;MAGNESIUM HYDROXIDE] [Concomitant]
     Active Substance: ALUMINUM HYDROXIDE\MAGNESIUM HYDROXIDE
     Indication: DYSPEPSIA
     Dosage: 15 MILLILITER, TID
     Route: 048
     Dates: start: 20201113, end: 20201213
  14. DONGA ACETAMINOPHEN [Concomitant]
     Dosage: UNK
     Dates: start: 20200820, end: 20210303
  15. PURINETONE [Concomitant]
     Dosage: 50 MILLIGRAM, QD
     Route: 048
     Dates: start: 20000614, end: 20000711
  16. GASMOTIN [Concomitant]
     Active Substance: MOSAPRIDE CITRATE
     Indication: DYSPEPSIA
     Dosage: 5 MILLIGRAM, BID
     Route: 048
     Dates: start: 20190826, end: 20210303
  17. VALIUM [Concomitant]
     Active Substance: DIAZEPAM
     Indication: SLEEP DISORDER
     Dosage: 5 MILLIGRAM, QD
     Route: 048
     Dates: start: 20201130, end: 20201213
  18. HYSPAN [Concomitant]
     Active Substance: BUTYLSCOPOLAMINE BROMIDE
     Indication: PREMEDICATION
     Dosage: 20 MILLIGRAM, QD
     Route: 042
     Dates: start: 20210304, end: 20210304
  19. PENTASA [Concomitant]
     Active Substance: MESALAMINE
     Dosage: 1500 MILLIGRAM, BID
     Route: 048
     Dates: start: 20101115, end: 20130304
  20. PENTASA [Concomitant]
     Active Substance: MESALAMINE
     Dosage: 1500 MILLIGRAM, BID
     Route: 048
     Dates: start: 20131224, end: 20141222
  21. MVH [Concomitant]
     Active Substance: VITAMINS
     Dosage: 05 MILLILITER, QD
     Route: 042
     Dates: start: 20210306, end: 20210308
  22. EMTHEXAT [METHOTREXATE SODIUM] [Concomitant]
     Dosage: 25 MILLIGRAM, QD
     Route: 058
     Dates: start: 20000726, end: 20011115
  23. ESOMEZOLE [Concomitant]
     Indication: DYSPEPSIA
     Dosage: 20 MILLIGRAM, QD
     Route: 048
     Dates: start: 20200406, end: 20210303
  24. PENTASA [Concomitant]
     Active Substance: MESALAMINE
     Dosage: 1000 MILLIGRAM, QID
     Route: 048
     Dates: start: 20000308, end: 20000615
  25. PENTASA [Concomitant]
     Active Substance: MESALAMINE
     Dosage: 500 MILLIGRAM, TID
     Route: 048
     Dates: start: 20000614, end: 20011120
  26. PENTASA [Concomitant]
     Active Substance: MESALAMINE
     Dosage: 1500 MILLIGRAM, TID
     Route: 048
     Dates: start: 20021011, end: 20040325
  27. PENTASA [Concomitant]
     Active Substance: MESALAMINE
     Dosage: 1500 MILLIGRAM, BID
     Route: 048
     Dates: start: 20130305, end: 20130617
  28. PENTASA [Concomitant]
     Active Substance: MESALAMINE
     Dosage: 1000 MILLIGRAM, QD
     Route: 048
     Dates: start: 20131224, end: 20141222
  29. CORTISOL [HYDROCORTISONE] [Concomitant]
     Dosage: 100 MILLIGRAM, TID
     Route: 042
     Dates: start: 20210304, end: 20210308
  30. AZATHIOPRINE. [Concomitant]
     Active Substance: AZATHIOPRINE
     Dosage: 12.5 MILLIGRAM, BID
     Route: 048
     Dates: start: 20070321, end: 20070403
  31. VEDOLIZUMAB [Suspect]
     Active Substance: VEDOLIZUMAB
     Indication: CROHN^S DISEASE
     Dosage: 300 MILLIGRAM
     Route: 042
     Dates: start: 20201130
  32. TWYNSTA [Concomitant]
     Active Substance: AMLODIPINE BESYLATE\TELMISARTAN
     Indication: HYPERTENSION
     Dosage: UNK UNK, QD
     Route: 048
     Dates: start: 20200217, end: 20210303
  33. PENTASA [Concomitant]
     Active Substance: MESALAMINE
     Dosage: 1500 MILLIGRAM, TID
     Route: 048
     Dates: start: 20011212, end: 20020808
  34. PENTASA [Concomitant]
     Active Substance: MESALAMINE
     Dosage: 2000 MILLIGRAM, BID
     Route: 048
     Dates: start: 20131001, end: 20131223
  35. PENTASA [Concomitant]
     Active Substance: MESALAMINE
     Dosage: 1000 MILLIGRAM, BID
     Route: 048
     Dates: start: 20150209, end: 20150517
  36. SMOFKABIVEN PERIPHERAL [Concomitant]
     Indication: NUTRITIONAL SUPPLEMENTATION
     Dosage: 1448 MILLILITER, QD
     Route: 042
     Dates: start: 20210304, end: 20210308
  37. AZATHIOPRINE. [Concomitant]
     Active Substance: AZATHIOPRINE
     Dosage: 12.5 MILLIGRAM, QD
     Route: 048
     Dates: start: 20070516, end: 20070529
  38. AZATHIOPRINE. [Concomitant]
     Active Substance: AZATHIOPRINE
     Dosage: 12.5 MILLIGRAM, QD
     Route: 048
     Dates: start: 20071010, end: 20071022
  39. FERINJECT [Concomitant]
     Active Substance: FERRIC CARBOXYMALTOSE
     Indication: ANAEMIA
     Dosage: 10 MILLILITER, QD
     Route: 042
     Dates: start: 20201130, end: 20201130
  40. PENTASA [Concomitant]
     Active Substance: MESALAMINE
     Dosage: 1500 MILLIGRAM, TID
     Route: 048
     Dates: start: 20040423, end: 20101114
  41. PANTOLINE [Concomitant]
     Active Substance: PANTOPRAZOLE SODIUM
     Dosage: 40 MILLIGRAM, QD
     Route: 048
     Dates: start: 20200309
  42. AZATHIOPRINE. [Concomitant]
     Active Substance: AZATHIOPRINE
     Dosage: 12.5 MILLIGRAM, QD
     Route: 048
     Dates: start: 20070404, end: 20070515
  43. AZATHIOPRINE. [Concomitant]
     Active Substance: AZATHIOPRINE
     Dosage: 25 MILLIGRAM, QD
     Route: 048
     Dates: start: 20070404, end: 20070515

REACTIONS (2)
  - Crohn^s disease [Recovered/Resolved]
  - Pyrexia [Recovered/Resolved]

NARRATIVE: CASE EVENT DATE: 20210304
